FAERS Safety Report 8618858-9 (Version None)
Quarter: 2012Q3

REPORT INFORMATION
  Report Type: 
  Country: None (occurrence: None)
  Receive Date: 20120824
  Receipt Date: 20120814
  Transmission Date: 20120928
  Serious: Yes (Other)
  Sender: FDA-Public Use
  Company Number: US-JNJFOC-20120516352

PATIENT
  Sex: Female

DRUGS (19)
  1. TRAZODONE HYDROCHLORIDE [Suspect]
     Indication: DEPRESSION
     Route: 048
  2. ZOLOFT [Suspect]
     Indication: ANTIDEPRESSANT THERAPY
     Route: 048
  3. EFFEXOR [Suspect]
     Indication: PRODUCT USED FOR UNKNOWN INDICATION
     Route: 048
  4. TOPAMAX [Suspect]
     Indication: CONVULSION
     Route: 048
     Dates: start: 20060918, end: 20061218
  5. BUPIVACAINE HCL [Suspect]
     Indication: PRODUCT USED FOR UNKNOWN INDICATION
     Route: 008
  6. COLACE [Suspect]
     Indication: PRODUCT USED FOR UNKNOWN INDICATION
     Route: 065
  7. FOLIC ACID [Concomitant]
     Indication: VITAMIN SUPPLEMENTATION
     Route: 065
  8. FERROUS SULFATE TAB [Concomitant]
     Route: 065
  9. HYDROXYZINE [Suspect]
     Indication: ANXIETY
     Dosage: AS NECESSARY
     Route: 048
  10. METFORMIN HCL [Suspect]
     Indication: TYPE 2 DIABETES MELLITUS
     Route: 048
  11. IBUPROFEN [Suspect]
     Indication: PRODUCT USED FOR UNKNOWN INDICATION
     Route: 065
  12. OXYTOCIN [Suspect]
     Indication: PRODUCT USED FOR UNKNOWN INDICATION
     Route: 042
  13. RISEDRONATE SODIUM [Concomitant]
     Indication: VITAMIN SUPPLEMENTATION
     Route: 065
  14. IBUPROFEN [Suspect]
     Route: 065
  15. BRETHINE [Suspect]
     Indication: PRODUCT USED FOR UNKNOWN INDICATION
     Route: 058
  16. VITAMIN AND MINERAL PRENATAL SUPPLEMENT W/ FOLIC ACID CAP [Concomitant]
     Route: 048
  17. TOPAMAX [Suspect]
     Indication: MIGRAINE
     Route: 048
     Dates: start: 20060918, end: 20061218
  18. MIRTAZAPINE [Suspect]
     Indication: DEPRESSION
     Route: 048
  19. FENTANYL [Suspect]
     Indication: PRODUCT USED FOR UNKNOWN INDICATION
     Route: 008

REACTIONS (5)
  - OLIGOHYDRAMNIOS [None]
  - EPILEPSY [None]
  - MATERNAL EXPOSURE DURING PREGNANCY [None]
  - PERINEAL LACERATION [None]
  - EMOTIONAL DISORDER [None]
